FAERS Safety Report 14232753 (Version 3)
Quarter: 2017Q4

REPORT INFORMATION
  Report Type: Spontaneous
  Country: CN (occurrence: CN)
  Receive Date: 20171129
  Receipt Date: 20171222
  Transmission Date: 20180321
  Serious: Yes (Death, Other)
  Sender: FDA-Public Use
  Company Number: CN-ASTRAZENECA-2017SF20505

PATIENT
  Age: 66 Year
  Sex: Male

DRUGS (2)
  1. BRILINTA [Suspect]
     Active Substance: TICAGRELOR
     Dosage: 180.0MG UNKNOWN
     Route: 048
  2. ASPIRIN. [Concomitant]
     Active Substance: ASPIRIN
     Dosage: 300.0MG UNKNOWN

REACTIONS (7)
  - Dysphoria [Unknown]
  - Snoring [Fatal]
  - Heart rate decreased [Unknown]
  - Loss of consciousness [Unknown]
  - Cerebral haemorrhage [Fatal]
  - Confusional state [Fatal]
  - Musculoskeletal stiffness [Fatal]
